FAERS Safety Report 13035101 (Version 6)
Quarter: 2017Q2

REPORT INFORMATION
  Report Type: Spontaneous
  Country: US (occurrence: US)
  Receive Date: 20161216
  Receipt Date: 20170407
  Transmission Date: 20170830
  Serious: Yes (Hospitalization, Other)
  Sender: FDA-Public Use
  Company Number: US-PFIZER INC-2016579864

PATIENT
  Age: 63 Year
  Sex: Male
  Weight: 95 kg

DRUGS (18)
  1. RAPAMUNE [Suspect]
     Active Substance: SIROLIMUS
     Dosage: 2 MG, 1X/DAY
     Dates: start: 200802
  2. NOVOLOG MIX 70/30 [Concomitant]
     Active Substance: INSULIN ASPART
     Indication: DIABETES MELLITUS
     Dosage: 45 IU, 2X/DAY
     Dates: start: 2014
  3. VITAMIN D /00107901/ [Concomitant]
     Active Substance: ERGOCALCIFEROL
     Dosage: 4000 IU, 1X/DAY
     Dates: start: 2015
  4. LEVOTHROID [Concomitant]
     Active Substance: LEVOTHYROXINE SODIUM
     Dosage: 175 UG, DAILY
     Route: 048
  5. RAPAMUNE [Suspect]
     Active Substance: SIROLIMUS
     Indication: LIVER TRANSPLANT
     Dosage: 2 MG, DAILY
     Route: 048
     Dates: start: 200502
  6. SYNTHROID [Concomitant]
     Active Substance: LEVOTHYROXINE SODIUM
     Indication: THYROID DISORDER
     Dosage: 175 UG, 1X/DAY
     Dates: start: 2013
  7. ZOLOFT [Concomitant]
     Active Substance: SERTRALINE HYDROCHLORIDE
     Indication: HOMICIDAL IDEATION
  8. FERROUS SULFATE. [Concomitant]
     Active Substance: FERROUS SULFATE
     Indication: BLOOD IRON
     Dosage: 325 MG, 1X/DAY (WITH BREAKFAST)
     Route: 048
     Dates: start: 2014
  9. LIPITOR [Concomitant]
     Active Substance: ATORVASTATIN CALCIUM
     Indication: BLOOD CHOLESTEROL
     Dosage: 40 MG, 1X/DAY
     Dates: start: 2011
  10. ZOLOFT [Concomitant]
     Active Substance: SERTRALINE HYDROCHLORIDE
     Indication: SUICIDAL BEHAVIOUR
     Dosage: 100 MG, 1X/DAY
     Dates: start: 2004
  11. AMBIEN [Concomitant]
     Active Substance: ZOLPIDEM TARTRATE
     Indication: SLEEP DISORDER
     Dosage: 5 MG, 1X/DAY
     Dates: start: 2000
  12. LANOXIN [Concomitant]
     Active Substance: DIGOXIN
     Dosage: 125 UG, DAILY
     Route: 048
     Dates: start: 2015
  13. COZAAR [Concomitant]
     Active Substance: LOSARTAN POTASSIUM
     Indication: RENAL DISORDER
     Dosage: 50 MG, 1X/DAY
     Dates: start: 2012
  14. VITAMIN D3 [Concomitant]
     Active Substance: CHOLECALCIFEROL
     Dosage: 2000 IU, UNK (6 DAYS WEEKLY; 5000 UNITS ONE DAY)
     Route: 048
     Dates: start: 2014
  15. LOPID [Concomitant]
     Active Substance: GEMFIBROZIL
     Dosage: 600 MG, 2X/DAY
     Dates: start: 2012
  16. ASPIRIN /00002701/ [Concomitant]
     Active Substance: ASPIRIN
     Indication: CARDIAC DISORDER
     Dosage: 81 MG, ALTERNATE DAY
     Dates: start: 1999
  17. NOVOLIN [Concomitant]
     Active Substance: INSULIN HUMAN
     Dosage: UNK UNK, 2X/DAY (100 IU/ML)
     Route: 058
     Dates: start: 200204
  18. COUMADIN [Concomitant]
     Active Substance: WARFARIN SODIUM
     Indication: CARDIAC DISORDER
     Dosage: 2 MG, 1X/DAY
     Dates: start: 2014

REACTIONS (4)
  - Product use in unapproved indication [Not Recovered/Not Resolved]
  - Road traffic accident [Not Recovered/Not Resolved]
  - Eye infection [Not Recovered/Not Resolved]
  - Blindness unilateral [Not Recovered/Not Resolved]

NARRATIVE: CASE EVENT DATE: 200502
